FAERS Safety Report 8448002-2 (Version None)
Quarter: 2012Q2

REPORT INFORMATION
  Report Type: 
  Country: None (occurrence: None)
  Receive Date: 20120619
  Receipt Date: 20120613
  Transmission Date: 20120825
  Serious: Yes (Other)
  Sender: FDA-Public Use
  Company Number: US-PFIZER INC-2012143461

PATIENT
  Sex: Female

DRUGS (1)
  1. ADVIL PM [Suspect]
     Dosage: UNK

REACTIONS (3)
  - DIARRHOEA [None]
  - MALAISE [None]
  - MYOCARDIAL INFARCTION [None]
